FAERS Safety Report 10829165 (Version 1)
Quarter: 2015Q1

REPORT INFORMATION
  Report Type: Spontaneous
  Country: US (occurrence: US)
  Receive Date: 20150219
  Receipt Date: 20150219
  Transmission Date: 20150721
  Serious: Yes (Other)
  Sender: FDA-Public Use
  Company Number: US-BRACCO-011633

PATIENT
  Age: 76 Year
  Sex: Female

DRUGS (1)
  1. READI-CAT [Suspect]
     Active Substance: BARIUM SULFATE
     Indication: COMPUTERISED TOMOGRAM ABDOMEN
     Route: 048
     Dates: start: 20150106, end: 20150106

REACTIONS (1)
  - Blood glucose increased [Recovering/Resolving]

NARRATIVE: CASE EVENT DATE: 20150106
